FAERS Safety Report 5351201-X (Version None)
Quarter: 2007Q2

REPORT INFORMATION
  Report Type: 
  Country: None (occurrence: None)
  Receive Date: 20070608
  Receipt Date: 20070528
  Transmission Date: 20071010
  Serious: Yes (Other)
  Sender: FDA-Public Use
  Company Number: AR-PFIZER INC-2007043453

PATIENT
  Sex: Male

DRUGS (1)
  1. SUTENT [Suspect]

REACTIONS (15)
  - ANAEMIA MACROCYTIC [None]
  - BLISTER [None]
  - DYSPHAGIA [None]
  - FALL [None]
  - GAIT DISTURBANCE [None]
  - HEADACHE [None]
  - HYPERAESTHESIA [None]
  - LYMPHOCYTOSIS [None]
  - MALAISE [None]
  - NAUSEA [None]
  - ORAL DISCOMFORT [None]
  - PAIN IN EXTREMITY [None]
  - PALMAR-PLANTAR ERYTHRODYSAESTHESIA SYNDROME [None]
  - THROAT IRRITATION [None]
  - YELLOW SKIN [None]
